FAERS Safety Report 21641108 (Version 1)
Quarter: 2022Q4

REPORT INFORMATION
  Report Type: Report from Study
  Country: US (occurrence: US)
  Receive Date: 20221125
  Receipt Date: 20221125
  Transmission Date: 20230113
  Serious: No
  Sender: FDA-Public Use
  Company Number: US-ABBVIE-4179283

PATIENT
  Sex: Female

DRUGS (1)
  1. HUMIRA [Suspect]
     Active Substance: ADALIMUMAB
     Indication: Rheumatoid arthritis
     Dosage: CITRATE FREE,?FORM STRENGTH: 40: MILLIGRAM
     Route: 058

REACTIONS (6)
  - Fatigue [Unknown]
  - Dizziness [Unknown]
  - Hypoaesthesia oral [Unknown]
  - Anosmia [Unknown]
  - Ageusia [Unknown]
  - Hypoaesthesia [Unknown]
